FAERS Safety Report 7118840-7 (Version None)
Quarter: 2010Q4

REPORT INFORMATION
  Report Type: 
  Country: None (occurrence: None)
  Receive Date: 20101123
  Receipt Date: 20100802
  Transmission Date: 20110411
  Serious: No
  Sender: FDA-Public Use
  Company Number: US-KINGPHARMUSA00001-K201000970

PATIENT
  Sex: Male
  Weight: 77.098 kg

DRUGS (3)
  1. FLECTOR [Suspect]
     Indication: MUSCULOSKELETAL CHEST PAIN
     Dosage: 1 PATCH, QHS
     Route: 061
     Dates: start: 20100701, end: 20100701
  2. FLECTOR [Suspect]
     Indication: BACK PAIN
  3. ANTIHYPERTENSIVES [Concomitant]
     Indication: HYPERTENSION
     Dosage: UNK

REACTIONS (2)
  - OEDEMA PERIPHERAL [None]
  - PAIN IN EXTREMITY [None]
